FAERS Safety Report 8369204-X (Version None)
Quarter: 2012Q2

REPORT INFORMATION
  Report Type: 
  Country: None (occurrence: None)
  Receive Date: 20120518
  Receipt Date: 20120515
  Transmission Date: 20120825
  Serious: Yes (Other)
  Sender: FDA-Public Use
  Company Number: US-PURDUE-USA-2012-0086605

PATIENT
  Sex: Male
  Weight: 99.773 kg

DRUGS (7)
  1. MS CONTIN [Suspect]
     Indication: PRODUCT USED FOR UNKNOWN INDICATION
     Dosage: 60 MG, BID
     Dates: start: 20060101
  2. LYRICA [Suspect]
     Dosage: 300 MG, BID
     Dates: start: 20120401
  3. ELAVIL [Suspect]
     Indication: PRODUCT USED FOR UNKNOWN INDICATION
  4. VALIUM [Suspect]
     Indication: PRODUCT USED FOR UNKNOWN INDICATION
     Dosage: 10 MG, TID
  5. LYRICA [Suspect]
     Indication: SPINAL DISORDER
     Dosage: 300 MG, BID
     Route: 048
     Dates: start: 20050101, end: 20120301
  6. SOMA [Suspect]
     Indication: PRODUCT USED FOR UNKNOWN INDICATION
     Dosage: 350 MG, TID
  7. PERCOCET [Suspect]
     Indication: PRODUCT USED FOR UNKNOWN INDICATION

REACTIONS (3)
  - TOXICITY TO VARIOUS AGENTS [None]
  - BLOOD CHOLESTEROL INCREASED [None]
  - DRY MOUTH [None]
